FAERS Safety Report 7186736-0 (Version None)
Quarter: 2010Q4

REPORT INFORMATION
  Report Type: 
  Country: None (occurrence: None)
  Receive Date: 20101222
  Receipt Date: 20101216
  Transmission Date: 20110411
  Serious: Yes (Other)
  Sender: FDA-Public Use
  Company Number: FR-PFIZER INC-2010176653

PATIENT
  Age: 78 Year
  Sex: Female

DRUGS (11)
  1. INIPOMP [Suspect]
     Dosage: 40 MG, 1X/DAY
     Route: 048
  2. CORTANCYL [Suspect]
     Indication: DERMATOMYOSITIS
     Dosage: 70 MG, (THEN DOSE REDUCED)
     Route: 048
     Dates: start: 20090701
  3. FEMARA [Suspect]
     Indication: BREAST CANCER
     Dosage: UNK
     Route: 048
  4. PLAQUENIL [Suspect]
     Indication: DERMATOMYOSITIS
     Dosage: 200 MG, 2X/DAY
     Route: 048
     Dates: start: 20090501, end: 20091001
  5. METOJECT [Suspect]
     Indication: DERMATOMYOSITIS
     Dosage: 10 MG, EVERY MONDAY
  6. SPECIAFOLDINE [Suspect]
     Dosage: EVERYDAY EXCEPT MONDAYS
     Route: 048
  7. CACIT D3 [Suspect]
     Dosage: 1 DOSAGE FORMS
     Route: 048
  8. FOSAMAX [Suspect]
     Dosage: 1 DF, WEEKLY
     Route: 048
  9. ZELITREX [Suspect]
     Dosage: UNK
     Route: 048
  10. APROVEL [Suspect]
     Indication: HYPERTENSION
     Dosage: UNK
     Route: 048
  11. ESCITALOPRAM [Suspect]
     Indication: DEPRESSION
     Dosage: UNK
     Route: 048

REACTIONS (1)
  - CATARACT [None]
